FAERS Safety Report 8354409-4 (Version None)
Quarter: 2012Q2

REPORT INFORMATION
  Report Type: 
  Country: None (occurrence: None)
  Receive Date: 20120511
  Receipt Date: 20120501
  Transmission Date: 20120825
  Serious: Yes (Hospitalization)
  Sender: FDA-Public Use
  Company Number: US-JNJFOC-20120502182

PATIENT
  Age: 5 Decade
  Sex: Female

DRUGS (1)
  1. REMICADE [Suspect]
     Indication: PRODUCT USED FOR UNKNOWN INDICATION
     Dosage: 60TH INFUSION
     Route: 042

REACTIONS (5)
  - CONVULSION [None]
  - PHOTOPSIA [None]
  - AURA [None]
  - PARAESTHESIA [None]
  - INFUSION RELATED REACTION [None]
